FAERS Safety Report 20172554 (Version 2)
Quarter: 2021Q4

REPORT INFORMATION
  Report Type: Other
  Country: US (occurrence: None)
  Receive Date: 20211210
  Receipt Date: 20211224
  Transmission Date: 20220303
  Serious: Yes (Death)
  Sender: FDA-Public Use
  Company Number: US-ROCHE-2976182

PATIENT
  Sex: Male

DRUGS (24)
  1. RITUXAN [Suspect]
     Active Substance: RITUXIMAB
     Indication: Diffuse large B-cell lymphoma
     Dosage: 10 ML
     Route: 042
  2. RITUXAN [Suspect]
     Active Substance: RITUXIMAB
     Dosage: 50 ML
     Route: 042
  3. TYLENOL [Concomitant]
     Active Substance: ACETAMINOPHEN
  4. ZOVIRAX [Concomitant]
     Active Substance: ACYCLOVIR
  5. PROVENTIL [Concomitant]
     Active Substance: ALBUTEROL
  6. ZYLOPRIM [Concomitant]
     Active Substance: ALLOPURINOL
  7. NORVASC [Concomitant]
     Active Substance: AMLODIPINE BESYLATE
  8. ELIQUIS [Concomitant]
     Active Substance: APIXABAN
  9. LIPITOR [Concomitant]
     Active Substance: ATORVASTATIN CALCIUM
  10. PULMICORT TURBUHALER [Concomitant]
     Active Substance: BUDESONIDE
  11. TUMS [Concomitant]
     Active Substance: CALCIUM CARBONATE
  12. LANOXIN [Concomitant]
     Active Substance: DIGOXIN
  13. FOLVITE [Concomitant]
     Active Substance: FOLIC ACID
  14. MUCINEX [Concomitant]
     Active Substance: GUAIFENESIN
  15. DUONEB [Concomitant]
     Active Substance: ALBUTEROL SULFATE\IPRATROPIUM BROMIDE
  16. CLARITIN [Concomitant]
     Active Substance: LORATADINE
  17. LOPRESSOR [Concomitant]
     Active Substance: METOPROLOL TARTRATE
  18. VITAMINS [Concomitant]
     Active Substance: VITAMINS
  19. PROTONIX [Concomitant]
     Active Substance: PANTOPRAZOLE SODIUM
  20. COMPAZINE [Concomitant]
     Active Substance: PROCHLORPERAZINE MALEATE
  21. ACCUPRIL [Concomitant]
     Active Substance: QUINAPRIL HYDROCHLORIDE
  22. TESTOSTERONE [Concomitant]
     Active Substance: TESTOSTERONE
  23. THIAMINE [Concomitant]
     Active Substance: THIAMINE
  24. TAMSULOSIN [Concomitant]
     Active Substance: TAMSULOSIN

REACTIONS (1)
  - Death [Fatal]
